FAERS Safety Report 22018127 (Version 2)
Quarter: 2023Q1

REPORT INFORMATION
  Report Type: Spontaneous
  Country: US (occurrence: US)
  Receive Date: 20230221
  Receipt Date: 20230302
  Transmission Date: 20230417
  Serious: No
  Sender: FDA-Public Use
  Company Number: US-ELI_LILLY_AND_COMPANY-US202302000613

PATIENT
  Age: 41 Year
  Sex: Female
  Weight: 52.2 kg

DRUGS (4)
  1. ADCIRCA [Suspect]
     Active Substance: TADALAFIL
     Indication: Pulmonary arterial hypertension
     Dosage: UNK, UNKNOWN
     Route: 065
  2. AMBRISENTAN [Suspect]
     Active Substance: AMBRISENTAN
     Indication: Pulmonary arterial hypertension
     Dosage: UNK, UNKNOWN
     Route: 065
  3. REMODULIN [Suspect]
     Active Substance: TREPROSTINIL
     Indication: Pulmonary arterial hypertension
     Dosage: 0.115 UG/KG, DAILY
     Route: 058
     Dates: start: 20120109
  4. COUMADIN [Concomitant]
     Active Substance: WARFARIN SODIUM
     Indication: Pulmonary arterial hypertension

REACTIONS (2)
  - Illness [Recovered/Resolved]
  - Product dose omission issue [Recovered/Resolved]
